FAERS Safety Report 5245130-X (Version None)
Quarter: 2007Q1

REPORT INFORMATION
  Report Type: 
  Country: None (occurrence: None)
  Receive Date: 20070223
  Receipt Date: 20070215
  Transmission Date: 20070707
  Serious: Yes (Hospitalization, Disabling)
  Sender: FDA-Public Use
  Company Number: PHBS2007CR01702

PATIENT
  Age: 11 Year
  Sex: Male
  Weight: 42 kg

DRUGS (5)
  1. HIGH FIBER DIET [Concomitant]
     Dosage: UNK, UNK
     Dates: start: 20050101, end: 20050501
  2. IMIPRAMINE [Concomitant]
     Dosage: 40 MG/DAY
     Route: 048
     Dates: start: 20050101, end: 20050501
  3. VALPROIC ACID [Concomitant]
     Indication: CONDUCT DISORDER
     Dosage: 250 MG/DAY
     Route: 048
     Dates: start: 20040901, end: 20050101
  4. ZELMAC [Suspect]
     Indication: CONSTIPATION
     Dosage: 6 MG, Q12H
     Route: 048
     Dates: start: 20050101, end: 20061201
  5. ZELMAC [Suspect]
     Dosage: 12 MG, Q12H
     Route: 048
     Dates: start: 20061201

REACTIONS (14)
  - BRAIN OEDEMA [None]
  - COMPUTERISED TOMOGRAM ABNORMAL [None]
  - CONSTIPATION [None]
  - DEPRESSED LEVEL OF CONSCIOUSNESS [None]
  - FACIAL PALSY [None]
  - HEMIPLEGIA [None]
  - INCREASED APPETITE [None]
  - INTRACRANIAL PRESSURE INCREASED [None]
  - ISCHAEMIC STROKE [None]
  - MUTISM [None]
  - NUCLEAR MAGNETIC RESONANCE IMAGING ABNORMAL [None]
  - ONYCHOPHAGIA [None]
  - PARALYSIS FLACCID [None]
  - VOMITING [None]
